FAERS Safety Report 25266999 (Version 1)
Quarter: 2025Q2

REPORT INFORMATION
  Report Type: Spontaneous
  Country: QA (occurrence: QA)
  Receive Date: 20250505
  Receipt Date: 20250505
  Transmission Date: 20250717
  Serious: Yes (Other)
  Sender: STRIDES
  Company Number: QA-STRIDES ARCOLAB LIMITED-2025SP005394

PATIENT
  Age: 41 Year
  Sex: Male

DRUGS (2)
  1. ETOPOSIDE [Suspect]
     Active Substance: ETOPOSIDE
     Indication: Mixed adenoneuroendocrine carcinoma
     Route: 065
  2. CISPLATIN [Suspect]
     Active Substance: CISPLATIN
     Indication: Mixed adenoneuroendocrine carcinoma
     Route: 065

REACTIONS (2)
  - Condition aggravated [Unknown]
  - Off label use [Unknown]
